FAERS Safety Report 12675401 (Version 1)
Quarter: 2016Q3

REPORT INFORMATION
  Report Type: Spontaneous
  Country: CH (occurrence: CH)
  Receive Date: 20160823
  Receipt Date: 20160823
  Transmission Date: 20161109
  Serious: Yes (Life-Threatening, Hospitalization)
  Sender: FDA-Public Use
  Company Number: CH-ROCHE-1816038

PATIENT
  Age: 65 Year
  Sex: Male
  Weight: 81 kg

DRUGS (9)
  1. NOVALGIN (SWITZERLAND) [Suspect]
     Active Substance: DIPYRONE
     Indication: PAIN
     Route: 048
     Dates: start: 201604, end: 20160704
  2. PANTOPRAZOL [Concomitant]
     Active Substance: PANTOPRAZOLE SODIUM
     Route: 048
  3. TEMODAL [Suspect]
     Active Substance: TEMOZOLOMIDE
     Indication: PANCREATIC NEUROENDOCRINE TUMOUR
     Route: 048
     Dates: start: 20160623, end: 20160628
  4. XELODA [Suspect]
     Active Substance: CAPECITABINE
     Indication: PANCREATIC NEUROENDOCRINE TUMOUR
     Dosage: UNKNOWN IF SECOND CYCLE WILL BE ADMINISTERED
     Route: 048
     Dates: start: 20160614, end: 20160628
  5. LANTUS [Concomitant]
     Active Substance: INSULIN GLARGINE
     Indication: INSULIN-REQUIRING TYPE 2 DIABETES MELLITUS
     Route: 058
     Dates: end: 201607
  6. NAPROXEN. [Suspect]
     Active Substance: NAPROXEN
     Indication: TUMOUR ASSOCIATED FEVER
     Route: 048
     Dates: start: 20160705, end: 20160714
  7. CREON [Concomitant]
     Active Substance: PANCRELIPASE AMYLASE\PANCRELIPASE LIPASE\PANCRELIPASE PROTEASE
     Route: 048
  8. ISCADOR [Suspect]
     Active Substance: VISCUM ALBUM FRUITING TOP
     Indication: PANCREATIC NEUROENDOCRINE TUMOUR
     Route: 058
     Dates: start: 20160625, end: 20160627
  9. DAFALGAN [Concomitant]
     Active Substance: ACETAMINOPHEN
     Indication: PAIN
     Route: 048

REACTIONS (10)
  - Petechiae [Recovering/Resolving]
  - Rash generalised [Recovering/Resolving]
  - Agranulocytosis [Recovered/Resolved]
  - Thrombocytopenia [Recovered/Resolved]
  - Purpura [Recovering/Resolving]
  - Vasculitis [Recovering/Resolving]
  - Neutropenia [Recovered/Resolved]
  - Pruritus [Recovering/Resolving]
  - Leukopenia [Recovered/Resolved]
  - Off label use [Unknown]

NARRATIVE: CASE EVENT DATE: 20160614
